FAERS Safety Report 7421012-X (Version None)
Quarter: 2011Q2

REPORT INFORMATION
  Report Type: 
  Country: None (occurrence: None)
  Receive Date: 20110418
  Receipt Date: 20110408
  Transmission Date: 20111010
  Serious: Yes (Other)
  Sender: FDA-Public Use
  Company Number: PHHY2011FR29425

PATIENT
  Age: 51 Year
  Sex: Male

DRUGS (7)
  1. METOPROLOL SUCCINATE [Suspect]
     Dosage: 100 MG, UNK
  2. LOPINAVIR/RITONAVIR [Interacting]
     Dosage: 1 DF, BID,400/100MG
  3. RAMIPRIL [Concomitant]
     Dosage: 5 MG, UNK
  4. ROSUVASTATIN [Concomitant]
     Dosage: 20 MG, UNK
  5. LEVOTHYROXINE SODIUM [Concomitant]
     Dosage: 75 MG, UNK
  6. ASPIRIN [Concomitant]
     Dosage: 325 MG, UNK
  7. LACIDIPINE [Interacting]
     Dosage: 2 MG, UNK

REACTIONS (6)
  - SYNCOPE [None]
  - HYPOTENSION [None]
  - BRADYCARDIA [None]
  - ATRIOVENTRICULAR BLOCK COMPLETE [None]
  - BLOOD PRESSURE DECREASED [None]
  - DRUG INTERACTION [None]
